FAERS Safety Report 9890784 (Version 1)
Quarter: 2014Q1

REPORT INFORMATION
  Report Type: Spontaneous
  Country: US (occurrence: None)
  Receive Date: 20140210
  Receipt Date: 20140210
  Transmission Date: 20141002
  Serious: Yes (Life-Threatening)
  Sender: FDA-Public Use
  Company Number: None

PATIENT
  Age: 82 Year
  Sex: Male
  Weight: 82.6 kg

DRUGS (23)
  1. ZOSYN [Suspect]
     Indication: INFECTION
     Route: 042
     Dates: start: 20140123, end: 20140128
  2. APAP [Concomitant]
  3. ASA [Concomitant]
  4. CALCIUM [Concomitant]
  5. CARVEDILOL [Concomitant]
  6. CHLORHEXIDINE [Concomitant]
  7. DIPHENHYDRAMINE [Concomitant]
  8. VANCOMYCIN [Concomitant]
  9. LEVOFLOXACIN [Concomitant]
  10. LEVOFLOXACIN [Concomitant]
  11. ENOXAPARIN [Concomitant]
  12. FAMOTIDINE [Concomitant]
  13. FENTANYL [Concomitant]
  14. ARIXTRA [Concomitant]
  15. FUROSEMIDE [Concomitant]
  16. INSULIN [Concomitant]
  17. DUONEB [Concomitant]
  18. MAGNESSIUM [Concomitant]
  19. MIDAZOLAM [Concomitant]
  20. MORPHINE [Concomitant]
  21. PROTONIX [Concomitant]
  22. NOREPI [Concomitant]
  23. VASOPRESSIN [Concomitant]

REACTIONS (1)
  - Thrombocytopenia [None]
